FAERS Safety Report 16668906 (Version 2)
Quarter: 2020Q1

REPORT INFORMATION
  Report Type: Spontaneous
  Country: US (occurrence: US)
  Receive Date: 20190805
  Receipt Date: 20200323
  Transmission Date: 20200409
  Serious: No
  Sender: FDA-Public Use
  Company Number: US-MYLANLABS-2019M1069447

PATIENT
  Age: 64 Year
  Sex: Female
  Weight: 54 kg

DRUGS (1)
  1. ESTRADIOL TRANSDERMAL SYSTEM [Suspect]
     Active Substance: ESTRADIOL
     Indication: PRODUCT USED FOR UNKNOWN INDICATION
     Dosage: UNK

REACTIONS (5)
  - Application site rash [Recovered/Resolved]
  - Application site pruritus [Unknown]
  - Application site mass [Unknown]
  - Product adhesion issue [Unknown]
  - Application site wound [Unknown]

NARRATIVE: CASE EVENT DATE: 201906
